FAERS Safety Report 9528116 (Version 1)
Quarter: 2013Q3

REPORT INFORMATION
  Report Type: Spontaneous
  Country: DK (occurrence: None)
  Receive Date: 20130913
  Receipt Date: 20130913
  Transmission Date: 20140515
  Serious: Yes (Hospitalization)
  Sender: FDA-Public Use
  Company Number: 2013P1019161

PATIENT
  Age: 40 Year
  Sex: Male

DRUGS (2)
  1. LITHIUM [Suspect]
  2. NORTRIPTYLINE [Suspect]

REACTIONS (6)
  - Suicide attempt [None]
  - Loss of consciousness [None]
  - Toxicity to various agents [None]
  - Cardiac arrest [None]
  - Haemodynamic instability [None]
  - Continuous haemodiafiltration [None]
